FAERS Safety Report 7137795-2 (Version None)
Quarter: 2010Q4

REPORT INFORMATION
  Report Type: 
  Country: None (occurrence: None)
  Receive Date: 20101119
  Receipt Date: 20101104
  Transmission Date: 20110411
  Serious: Yes (Hospitalization)
  Sender: FDA-Public Use
  Company Number: 2010004668

PATIENT
  Age: 36 Year
  Sex: Male

DRUGS (2)
  1. ERLOTINIB (ERLOTINIB) (TABLET) (ERLOTINIB) [Suspect]
     Indication: HEAD AND NECK CANCER
     Dosage: (150 MG, QD), ORAL
     Route: 048
     Dates: start: 20100920
  2. CISPLATIN [Suspect]
     Indication: HEAD AND NECK CANCER
     Dosage: (187 MG, 1X PER 3 WEEK), INTRAVENOUS
     Route: 042
     Dates: start: 20100927

REACTIONS (9)
  - DEHYDRATION [None]
  - DYSPHAGIA [None]
  - FATIGUE [None]
  - HYPONATRAEMIA [None]
  - MUCOSAL INFLAMMATION [None]
  - NAUSEA [None]
  - RENAL FAILURE ACUTE [None]
  - TINNITUS [None]
  - WEIGHT INCREASED [None]
